FAERS Safety Report 17972959 (Version 2)
Quarter: 2020Q3

REPORT INFORMATION
  Report Type: Spontaneous
  Country: US (occurrence: US)
  Receive Date: 20200702
  Receipt Date: 20200723
  Transmission Date: 20201103
  Serious: No
  Sender: FDA-Public Use
  Company Number: US-BAUSCH-BL-2020-018500

PATIENT
  Sex: Male
  Weight: 79.38 kg

DRUGS (1)
  1. PEPCID [Suspect]
     Active Substance: FAMOTIDINE
     Indication: OESOPHAGITIS
     Route: 048

REACTIONS (1)
  - Drug ineffective [Unknown]
